FAERS Safety Report 4933976-4 (Version None)
Quarter: 2006Q1

REPORT INFORMATION
  Report Type: 
  Country: None (occurrence: None)
  Receive Date: 20060303
  Receipt Date: 20060221
  Transmission Date: 20060701
  Serious: Yes (Hospitalization)
  Sender: FDA-Public Use
  Company Number: SERX20060002

PATIENT
  Age: 82 Year
  Sex: Female

DRUGS (8)
  1. SERESTA (OXAZEPAM) UNKNOWN  UNKNOWN [Suspect]
     Dosage: PO
     Route: 048
     Dates: end: 20051213
  2. SERESTA (OXAZEPAM) UNKNOWN UNKNOWN [Suspect]
     Dosage: PO
     Route: 048
     Dates: start: 20051218
  3. NITROGLYCERIN [Concomitant]
  4. ASPIRIN [Concomitant]
  5. DIGOXIN [Concomitant]
  6. FUROSEMIDE [Suspect]
     Dosage: PO
     Route: 048
     Dates: end: 20060102
  7. TRIATEC (RAMIPIRL) [Suspect]
     Dosage: PO
     Route: 048
  8. ALLOPURINOL [Suspect]
     Dosage: PO
     Route: 048
     Dates: start: 20050101, end: 20051213

REACTIONS (8)
  - ANTINUCLEAR ANTIBODY POSITIVE [None]
  - DERMATITIS BULLOUS [None]
  - EOSINOPHILIA [None]
  - ERYTHEMA [None]
  - GENERAL PHYSICAL HEALTH DETERIORATION [None]
  - HYPOKINESIA [None]
  - PRURIGO [None]
  - SCRATCH [None]
